FAERS Safety Report 25332430 (Version 4)
Quarter: 2025Q2

REPORT INFORMATION
  Report Type: Spontaneous
  Country: JP (occurrence: JP)
  Receive Date: 20250519
  Receipt Date: 20250625
  Transmission Date: 20250717
  Serious: Yes (Other)
  Sender: PFIZER
  Company Number: JP-PFIZER INC-PV202500058657

PATIENT
  Age: 54 Year
  Sex: Female

DRUGS (4)
  1. MEDROXYPROGESTERONE ACETATE [Suspect]
     Active Substance: MEDROXYPROGESTERONE ACETATE
     Indication: Hormone therapy
  2. ESTRADIOL [Suspect]
     Active Substance: ESTRADIOL
     Indication: Hormone therapy
     Dosage: CONTAINING 0.72 MG OF E 2 DESIGNED TO RELEASE 50 ?G PER DAY OF E2 CONTINUOUSLY ON APPLICATION
     Route: 062
  3. ESTRADIOL [Suspect]
     Active Substance: ESTRADIOL
     Dosage: DECREASED FROM 0.72 MG/DAY TO 0.54 MG/DAY
     Route: 062
  4. ESTRADIOL [Suspect]
     Active Substance: ESTRADIOL
     Dosage: DECREASED AGAIN FROM 0.54 MG/DAY TO 0.36 MG/DAY
     Route: 062

REACTIONS (2)
  - Abnormal uterine bleeding [Recovered/Resolved]
  - Abnormal withdrawal bleeding [Recovered/Resolved]
